FAERS Safety Report 6126013-X (Version None)
Quarter: 2009Q1

REPORT INFORMATION
  Report Type: 
  Country: None (occurrence: None)
  Receive Date: 20090320
  Receipt Date: 20090313
  Transmission Date: 20090719
  Serious: Yes (Death)
  Sender: FDA-Public Use
  Company Number: US-EISAI MEDIAL RESEARCH-E3810-02575-SOL-US

PATIENT
  Sex: Female
  Weight: 118.9 kg

DRUGS (5)
  1. ACIPHEX [Suspect]
     Indication: ABDOMINAL PAIN
     Route: 048
  2. CARDIZEM [Concomitant]
     Route: 048
  3. KLONOPIN [Concomitant]
     Route: 048
  4. POTASSIUM CHLORIDE [Concomitant]
     Indication: BLOOD POTASSIUM DECREASED
     Route: 048
  5. ACCURETIC [Concomitant]
     Route: 048

REACTIONS (1)
  - HEPATIC NEOPLASM MALIGNANT [None]
